FAERS Safety Report 9632815 (Version 1)
Quarter: 2013Q4

REPORT INFORMATION
  Report Type: Spontaneous
  Country: FR (occurrence: FR)
  Receive Date: 20131018
  Receipt Date: 20131018
  Transmission Date: 20140711
  Serious: Yes (Hospitalization, Other)
  Sender: FDA-Public Use
  Company Number: FR-TEVA-439272USA

PATIENT
  Age: 61 Year
  Sex: Male

DRUGS (3)
  1. LEVACT [Suspect]
     Indication: PLASMA CELL MYELOMA
     Route: 042
  2. VELCADE [Concomitant]
     Indication: PLASMA CELL MYELOMA
  3. DEXAMETHASONE [Concomitant]
     Indication: PLASMA CELL MYELOMA

REACTIONS (2)
  - Angioedema [Unknown]
  - Off label use [Unknown]
